FAERS Safety Report 5374422-9 (Version None)
Quarter: 2007Q2

REPORT INFORMATION
  Report Type: 
  Country: None (occurrence: None)
  Receive Date: 20070627
  Receipt Date: 20070627
  Transmission Date: 20071010
  Serious: No
  Sender: FDA-Public Use
  Company Number: None

PATIENT
  Age: 89 Year
  Sex: Male

DRUGS (1)
  1. TRAVOPROST [Suspect]
     Dosage: 1DROPS HS EYE
     Route: 047
     Dates: start: 20051207, end: 20061228

REACTIONS (2)
  - EYELID MARGIN CRUSTING [None]
  - EYELID OEDEMA [None]
